FAERS Safety Report 19644193 (Version 1)
Quarter: 2021Q3

REPORT INFORMATION
  Report Type: Other
  Country: BR (occurrence: BR)
  Receive Date: 20210801
  Receipt Date: 20210801
  Transmission Date: 20211014
  Serious: Yes (Hospitalization, Other)
  Sender: FDA-Public Use
  Company Number: BR-SQUARE-000025

PATIENT
  Age: 54 Year
  Sex: Female

DRUGS (2)
  1. ACYCLOVIR. [Suspect]
     Active Substance: ACYCLOVIR
     Indication: HERPES ZOSTER
     Dosage: 200 MG, EVERY 6 HOURS FOR14 DAYS
  2. TAMOXIFEN [Concomitant]
     Active Substance: TAMOXIFEN
     Indication: PRODUCT USED FOR UNKNOWN INDICATION
     Dosage: 20 MG/DAY AS HORMONAL THERAPY

REACTIONS (3)
  - Breast pain [Recovered/Resolved]
  - Radiation skin injury [Recovered/Resolved]
  - Condition aggravated [Recovered/Resolved]
